FAERS Safety Report 5463442-1 (Version None)
Quarter: 2007Q3

REPORT INFORMATION
  Report Type: 
  Country: None (occurrence: None)
  Receive Date: 20070920
  Receipt Date: 20070907
  Transmission Date: 20080115
  Serious: Yes (Other)
  Sender: FDA-Public Use
  Company Number: US-ELI_LILLY_AND_COMPANY-US200709001445

PATIENT
  Sex: Male

DRUGS (2)
  1. LEVOFLOXACIN [Interacting]
     Dosage: 500 MG, UNK
  2. CYMBALTA [Suspect]
     Indication: FIBROMYALGIA
     Dosage: 60 MG, UNK

REACTIONS (6)
  - ACTIVITIES OF DAILY LIVING IMPAIRED [None]
  - DISCOMFORT [None]
  - DRUG INTERACTION [None]
  - FEELING ABNORMAL [None]
  - PARAESTHESIA [None]
  - SEROTONIN SYNDROME [None]
